FAERS Safety Report 8805200 (Version 1)
Quarter: 2012Q4

REPORT INFORMATION
  Report Type: Spontaneous
  Country: DK (occurrence: None)
  Receive Date: 20120917
  Receipt Date: 20120917
  Transmission Date: 20130627
  Serious: Yes (Life-Threatening)
  Sender: FDA-Public Use
  Company Number: 2012MA011081

PATIENT
  Age: 61 Year
  Sex: Female

DRUGS (1)
  1. PACLITAXEL INJECTION USP 6 MG/ML (PACLITAXEL (SEMISYNTHETIC) USP) (PACLITAXEL (SEMISYNTHETIC) USP) [Suspect]
     Indication: LUNG NEOPLASM MALIGNANT
     Route: 042
     Dates: start: 20120518, end: 20120518

REACTIONS (4)
  - Dyspnoea [None]
  - Flushing [None]
  - Feeling hot [None]
  - Infusion related reaction [None]
